FAERS Safety Report 6405775-8 (Version None)
Quarter: 2009Q4

REPORT INFORMATION
  Report Type: 
  Country: None (occurrence: None)
  Receive Date: 20091019
  Receipt Date: 20091013
  Transmission Date: 20100525
  Serious: Yes (Hospitalization, Other)
  Sender: FDA-Public Use
  Company Number: JP-BAYER-200911341BYL

PATIENT
  Age: 77 Year
  Sex: Male
  Weight: 66 kg

DRUGS (19)
  1. NEXAVAR [Suspect]
     Indication: HEPATIC NEOPLASM MALIGNANT
     Dosage: UNIT DOSE: 200 MG
     Route: 048
     Dates: start: 20090416, end: 20090421
  2. CISPLATIN [Concomitant]
     Indication: HEPATIC NEOPLASM MALIGNANT
     Route: 025
     Dates: start: 20090428, end: 20090429
  3. KERATINAMIN [Concomitant]
     Indication: PROPHYLAXIS
     Dates: start: 20090414
  4. BUP-4 [Concomitant]
     Indication: PROPHYLAXIS
     Dosage: UNIT DOSE: 10 MG
     Route: 048
     Dates: start: 20090416
  5. SOSEGON [Concomitant]
     Indication: PREMEDICATION
     Route: 030
     Dates: start: 20090416, end: 20090416
  6. ATARAX [Concomitant]
     Indication: PREMEDICATION
     Route: 030
     Dates: start: 20090416, end: 20090416
  7. GRANISETRON HCL [Concomitant]
     Indication: PROPHYLAXIS
     Route: 042
     Dates: start: 20090416, end: 20090416
  8. DEXART [Concomitant]
     Indication: PROPHYLAXIS
     Route: 042
     Dates: start: 20090416, end: 20090416
  9. DEXART [Concomitant]
     Route: 042
     Dates: start: 20090417, end: 20090418
  10. MANNIGEN [Concomitant]
     Indication: PROPHYLAXIS
     Dosage: UNIT DOSE: 20 %
     Route: 042
     Dates: start: 20090416, end: 20090416
  11. IA-CALL [Concomitant]
     Route: 013
     Dates: start: 20090416, end: 20090416
  12. LECICARBON [Concomitant]
     Indication: CONSTIPATION PROPHYLAXIS
     Route: 054
     Dates: start: 20090416, end: 20090416
  13. ITOROL [Concomitant]
     Dosage: UNIT DOSE: 20 MG
     Route: 048
     Dates: start: 20090416, end: 20090417
  14. CALSLOT [Concomitant]
     Dosage: UNIT DOSE: 10 MG
     Route: 048
     Dates: start: 20090416, end: 20090421
  15. URSO 250 [Concomitant]
     Route: 046
     Dates: start: 20090416, end: 20090421
  16. ASPIRIN [Concomitant]
     Dosage: UNIT DOSE: 100 MG
     Route: 048
     Dates: start: 20090417, end: 20090421
  17. POLLAKISU [Concomitant]
     Indication: PROPHYLAXIS
     Dosage: UNIT DOSE: 2 MG
     Route: 048
     Dates: start: 20090417, end: 20090421
  18. FRANDOL [Concomitant]
     Dosage: UNIT DOSE: 20 MG
     Route: 048
     Dates: start: 20090417, end: 20090421
  19. COLAC [Concomitant]
     Indication: CONSTIPATION PROPHYLAXIS
     Route: 048
     Dates: start: 20090418, end: 20090418

REACTIONS (6)
  - DECREASED APPETITE [None]
  - GASTROINTESTINAL HAEMORRHAGE [None]
  - HAEMOGLOBIN DECREASED [None]
  - INFECTION [None]
  - PORTAL VEIN THROMBOSIS [None]
  - PYREXIA [None]
